FAERS Safety Report 18946584 (Version 1)
Quarter: 2021Q1

REPORT INFORMATION
  Report Type: Spontaneous
  Country: US (occurrence: US)
  Receive Date: 20210226
  Receipt Date: 20210226
  Transmission Date: 20210420
  Serious: No
  Sender: FDA-Public Use
  Company Number: US-TAKEDA-2021TUS012375

PATIENT
  Sex: Female
  Weight: 64.4 kg

DRUGS (13)
  1. LIDOCAINE. [Concomitant]
     Active Substance: LIDOCAINE
  2. SYMBICORT [Concomitant]
     Active Substance: BUDESONIDE\FORMOTEROL FUMARATE DIHYDRATE
  3. BENADRYL [ACRIVASTINE] [Concomitant]
     Active Substance: ACRIVASTINE
  4. DIPHENHYDRAMINE. [Concomitant]
     Active Substance: DIPHENHYDRAMINE
  5. TYLENOL [Concomitant]
     Active Substance: ACETAMINOPHEN
  6. PROAIR HFA [Concomitant]
     Active Substance: ALBUTEROL SULFATE
  7. CUVITRU [Suspect]
     Active Substance: HUMAN IMMUNOGLOBULIN G
     Indication: SELECTIVE IGG SUBCLASS DEFICIENCY
     Dosage: 9 GRAM, 1/WEEK
     Route: 058
     Dates: start: 20171027
  8. CUVITRU [Suspect]
     Active Substance: HUMAN IMMUNOGLOBULIN G
     Indication: IMMUNODEFICIENCY COMMON VARIABLE
  9. ACETAMINOPHEN. [Concomitant]
     Active Substance: ACETAMINOPHEN
  10. EPINEPHRINE. [Concomitant]
     Active Substance: EPINEPHRINE
  11. CALCIUM + D3 [CALCIUM;COLECALCIFEROL] [Concomitant]
     Active Substance: CALCIUM\CHOLECALCIFEROL
  12. ALLEGRA [Concomitant]
     Active Substance: FEXOFENADINE HYDROCHLORIDE
  13. NASACORT [Concomitant]
     Active Substance: TRIAMCINOLONE ACETONIDE

REACTIONS (2)
  - Malaise [Unknown]
  - Product physical issue [Unknown]
